FAERS Safety Report 25709830 (Version 1)
Quarter: 2025Q3

REPORT INFORMATION
  Report Type: Spontaneous
  Country: US (occurrence: US)
  Receive Date: 20250821
  Receipt Date: 20250821
  Transmission Date: 20251020
  Serious: No
  Sender: SUNOVION
  Company Number: US-SMPA-2025SPA010448

PATIENT
  Age: 70 Year
  Sex: Female
  Weight: 76.19 kg

DRUGS (3)
  1. GEMTESA [Suspect]
     Active Substance: VIBEGRON
     Indication: Bladder spasm
     Dosage: UNK
     Route: 048
     Dates: start: 20250801
  2. TYLENOL EXTRA STRENGTH [Concomitant]
     Active Substance: ACETAMINOPHEN
     Indication: Chest discomfort
  3. PRILOSEC [Concomitant]
     Active Substance: OMEPRAZOLE MAGNESIUM
     Indication: Acid base balance abnormal

REACTIONS (3)
  - Oesophageal spasm [Recovering/Resolving]
  - Bladder spasm [Unknown]
  - Chest discomfort [Unknown]
